FAERS Safety Report 6580350-3 (Version None)
Quarter: 2010Q1

REPORT INFORMATION
  Report Type: 
  Country: None (occurrence: None)
  Receive Date: 20100212
  Receipt Date: 20100201
  Transmission Date: 20100710
  Serious: Yes (Hospitalization)
  Sender: FDA-Public Use
  Company Number: PHHY2010CN05795

PATIENT
  Age: 75 Year

DRUGS (1)
  1. CARBAMAZEPINE [Suspect]
     Indication: PARKINSON'S DISEASE

REACTIONS (10)
  - FACE OEDEMA [None]
  - GENERALISED ERYTHEMA [None]
  - MYCOSIS FUNGOIDES [None]
  - MYCOSIS FUNGOIDES STAGE IV [None]
  - OEDEMA PERIPHERAL [None]
  - ORAL MUCOSA EROSION [None]
  - PRURITUS GENERALISED [None]
  - RASH GENERALISED [None]
  - SKIN EXFOLIATION [None]
  - WHITE BLOOD CELL COUNT INCREASED [None]
